FAERS Safety Report 4443299-8 (Version None)
Quarter: 2004Q3

REPORT INFORMATION
  Report Type: 
  Country: None (occurrence: None)
  Receive Date: 20040907
  Receipt Date: 20040907
  Transmission Date: 20050211
  Serious: Yes (Disabling)
  Sender: FDA-Public Use
  Company Number: None

PATIENT
  Age: 65 Year
  Sex: Female
  Weight: 52.1637 kg

DRUGS (3)
  1. ZICAM  ZINCUM GLUCONICUM 2X GEL TECH [Suspect]
     Indication: NASOPHARYNGITIS
     Dosage: 2-3TIMES DAY   COLD SYMPTOM   NASAL
     Route: 045
     Dates: start: 20030130, end: 20040130
  2. . [Concomitant]
  3. . [Concomitant]

REACTIONS (1)
  - ANOSMIA [None]
